FAERS Safety Report 4708296-3 (Version None)
Quarter: 2005Q3

REPORT INFORMATION
  Report Type: 
  Country: None (occurrence: None)
  Receive Date: 20050707
  Receipt Date: 20050628
  Transmission Date: 20060218
  Serious: Yes (Hospitalization)
  Sender: FDA-Public Use
  Company Number: 200511708EU

PATIENT
  Age: 77 Year
  Sex: Female

DRUGS (4)
  1. SEGURIL [Suspect]
     Indication: HEPATIC CIRRHOSIS
     Route: 048
     Dates: start: 20050420, end: 20050513
  2. SPIRONOLACTONE [Suspect]
     Indication: HEPATIC CIRRHOSIS
     Route: 048
     Dates: start: 20050420
  3. LACTULOSE [Concomitant]
     Route: 048
     Dates: start: 20050420
  4. OMEPRAZOLE [Concomitant]
     Indication: PROPHYLAXIS
     Route: 048

REACTIONS (1)
  - ENCEPHALOPATHY [None]
